FAERS Safety Report 9483051 (Version 2)
Quarter: 2013Q3

REPORT INFORMATION
  Report Type: Report from Study
  Country: US (occurrence: US)
  Receive Date: 20130828
  Receipt Date: 20130912
  Transmission Date: 20140515
  Serious: Yes (Hospitalization, Other)
  Sender: FDA-Public Use
  Company Number: US-ABBOTT-13P-163-1137030-00

PATIENT
  Sex: Female
  Weight: 68.1 kg

DRUGS (18)
  1. HUMIRA [Suspect]
     Indication: RHEUMATOID ARTHRITIS
     Dates: start: 2005, end: 2005
  2. HUMIRA [Suspect]
     Indication: COLITIS ULCERATIVE
     Dates: start: 2005, end: 2005
  3. HUMIRA [Suspect]
     Dates: start: 2005, end: 201304
  4. HUMIRA [Suspect]
  5. HYDROCODONE/ACETAMINOPHEN [Suspect]
     Indication: PAIN
  6. STEROIDS [Suspect]
     Indication: PRODUCT USED FOR UNKNOWN INDICATION
  7. LIALDA [Suspect]
  8. ALPRAZOLAM [Concomitant]
     Indication: ANXIETY
  9. PREDNISONE [Concomitant]
     Indication: SWELLING
  10. LASIX [Concomitant]
     Indication: SWELLING
  11. PROMETHAZINE [Concomitant]
     Indication: NAUSEA
  12. AZATHIOPRINE [Concomitant]
     Indication: RHEUMATOID ARTHRITIS
  13. ESTRADIOL [Concomitant]
     Indication: HORMONE REPLACEMENT THERAPY
  14. IRON [Concomitant]
     Indication: BLOOD IRON DECREASED
  15. ZOLPIDEM [Concomitant]
     Indication: INSOMNIA
  16. DEPAKOTE [Concomitant]
     Indication: ANXIETY
  17. LEVOTHYROXINE [Concomitant]
     Indication: HYPOTHYROIDISM
  18. UNNAMED HORMONE [Concomitant]
     Indication: HORMONE REPLACEMENT THERAPY

REACTIONS (34)
  - Hospitalisation [Unknown]
  - Vaginal haemorrhage [Recovered/Resolved]
  - Haemorrhage [Recovered/Resolved]
  - Thrombosis [Recovered/Resolved]
  - Uterine leiomyoma [Not Recovered/Not Resolved]
  - Blood iron decreased [Recovered/Resolved]
  - Uterine prolapse [Recovered/Resolved]
  - Bladder injury [Recovered/Resolved]
  - Urinary bladder haemorrhage [Recovered/Resolved]
  - Dysuria [Recovered/Resolved]
  - Uterine mass [Recovered/Resolved]
  - Pain [Recovered/Resolved]
  - Pneumonia viral [Recovered/Resolved]
  - Visual impairment [Not Recovered/Not Resolved]
  - Herpes ophthalmic [Not Recovered/Not Resolved]
  - Pain [Not Recovered/Not Resolved]
  - Diarrhoea [Not Recovered/Not Resolved]
  - Weight increased [Not Recovered/Not Resolved]
  - Asthenia [Not Recovered/Not Resolved]
  - Hot flush [Recovered/Resolved]
  - Pruritus [Recovered/Resolved]
  - Abdominal discomfort [Recovered/Resolved]
  - Swelling [Not Recovered/Not Resolved]
  - Pain in extremity [Not Recovered/Not Resolved]
  - Insomnia [Not Recovered/Not Resolved]
  - Arthralgia [Not Recovered/Not Resolved]
  - Constipation [Not Recovered/Not Resolved]
  - Dizziness [Not Recovered/Not Resolved]
  - Fall [Recovered/Resolved]
  - Hand fracture [Not Recovered/Not Resolved]
  - Fractured coccyx [Not Recovered/Not Resolved]
  - Injection site erythema [Not Recovered/Not Resolved]
  - Injection site urticaria [Recovered/Resolved]
  - Injection site pain [Recovered/Resolved]
